FAERS Safety Report 7924751-7 (Version None)
Quarter: 2011Q4

REPORT INFORMATION
  Report Type: 
  Country: None (occurrence: None)
  Receive Date: 20111118
  Receipt Date: 20110328
  Transmission Date: 20120403
  Serious: No
  Sender: FDA-Public Use
  Company Number: US-AMGEN-USASP2011016411

PATIENT
  Sex: Male

DRUGS (2)
  1. ENBREL [Suspect]
     Indication: RHEUMATOID ARTHRITIS
     Dosage: 25 MG, 2 TIMES/WK
     Dates: start: 20041007
  2. METHOTREXATE [Concomitant]
     Dosage: 1 MG, UNK
     Dates: start: 20041001

REACTIONS (2)
  - JOINT EFFUSION [None]
  - RHEUMATOID ARTHRITIS [None]
